FAERS Safety Report 17151878 (Version 3)
Quarter: 2020Q1

REPORT INFORMATION
  Report Type: Report from Study
  Country: CO (occurrence: CO)
  Receive Date: 20191213
  Receipt Date: 20200223
  Transmission Date: 20200409
  Serious: Yes (Other)
  Sender: FDA-Public Use
  Company Number: PHHY2019CO209520

PATIENT
  Sex: Female

DRUGS (2)
  1. FEMARA [Suspect]
     Active Substance: LETROZOLE
     Indication: BREAST CANCER
     Dosage: 2.5 MG, QD
     Route: 048
  2. KISQALI [Suspect]
     Active Substance: RIBOCICLIB
     Indication: BREAST CANCER METASTATIC
     Dosage: 600 MG, QD
     Route: 048

REACTIONS (12)
  - General physical health deterioration [Unknown]
  - Weight decreased [Unknown]
  - Sensory loss [Unknown]
  - Breast cancer [Unknown]
  - Mobility decreased [Unknown]
  - Malignant neoplasm progression [Unknown]
  - Metastases to lung [Unknown]
  - Tendon disorder [Unknown]
  - Decreased appetite [Unknown]
  - Lymphadenopathy [Unknown]
  - Inflammation [Unknown]
  - Musculoskeletal pain [Unknown]
